FAERS Safety Report 14879507 (Version 2)
Quarter: 2018Q3

REPORT INFORMATION
  Report Type: Report from Study
  Country: JP (occurrence: JP)
  Receive Date: 20180511
  Receipt Date: 20180701
  Transmission Date: 20181010
  Serious: Yes (Life-Threatening, Other)
  Sender: FDA-Public Use
  Company Number: JP-AMGEN-JPNNI2018064268

PATIENT
  Age: 63 Year
  Sex: Male

DRUGS (8)
  1. ETELCALCETIDE [Suspect]
     Active Substance: ETELCALCETIDE
     Dosage: 5 MG, 3 TIMES/WK
     Route: 042
     Dates: start: 20180210, end: 20180409
  2. ETELCALCETIDE [Suspect]
     Active Substance: ETELCALCETIDE
     Indication: HYPERPARATHYROIDISM SECONDARY
     Dosage: 5 MG, 3 TIMES/WK
     Route: 042
     Dates: start: 20170414, end: 20170514
  3. ETELCALCETIDE [Suspect]
     Active Substance: ETELCALCETIDE
     Dosage: 10 MG, 3 TIMES/WK
     Route: 042
     Dates: start: 20170515, end: 20170622
  4. CALTAN [Concomitant]
     Active Substance: CALCIUM CARBONATE
  5. CALCITRIOL. [Concomitant]
     Active Substance: CALCITRIOL
  6. ETELCALCETIDE [Suspect]
     Active Substance: ETELCALCETIDE
     Dosage: 10 MG, 3 TIMES/WK
     Route: 042
     Dates: start: 20170710, end: 20180209
  7. FOSRENOL [Concomitant]
     Active Substance: LANTHANUM CARBONATE
  8. ETELCALCETIDE [Suspect]
     Active Substance: ETELCALCETIDE
     Dosage: 2.5 MG, 3 TIMES/WK
     Route: 042
     Dates: start: 20180410

REACTIONS (1)
  - Renal cancer [Recovered/Resolved]

NARRATIVE: CASE EVENT DATE: 20170529
